FAERS Safety Report 9804936 (Version 1)
Quarter: 2014Q1

REPORT INFORMATION
  Report Type: Spontaneous
  Country: BR (occurrence: BR)
  Receive Date: 20140108
  Receipt Date: 20140108
  Transmission Date: 20141002
  Serious: Yes (Other)
  Sender: FDA-Public Use
  Company Number: BR-AMGEN-BRASP2014000893

PATIENT
  Age: 59 Year
  Sex: Female
  Weight: 50 kg

DRUGS (4)
  1. ENBREL [Suspect]
     Indication: RHEUMATOID ARTHRITIS
     Dosage: 50 MG, ONCE WEEKLY
     Route: 058
     Dates: start: 201104
  2. HIDROMED [Concomitant]
     Indication: CARDIAC DISORDER
     Dosage: UNK
  3. SIMVASTATIN [Concomitant]
     Indication: CARDIAC DISORDER
     Dosage: UNK
  4. ATENOLOL [Concomitant]
     Indication: HYPERTENSION
     Dosage: UNK

REACTIONS (4)
  - Infarction [Unknown]
  - Product quality issue [Unknown]
  - Injection site pain [Unknown]
  - Injection site haemorrhage [Unknown]
